FAERS Safety Report 20829735 (Version 1)
Quarter: 2022Q2

REPORT INFORMATION
  Report Type: Spontaneous
  Country: US (occurrence: US)
  Receive Date: 20220513
  Receipt Date: 20220513
  Transmission Date: 20220720
  Serious: Yes (Other)
  Sender: FDA-Public Use
  Company Number: US-THERATECHNOLOGIES EUROPE LIMITED-2022-THE-IBA-000109

PATIENT
  Sex: Male

DRUGS (4)
  1. TROGARZO [Suspect]
     Active Substance: IBALIZUMAB-UIYK
     Indication: Product used for unknown indication
     Dosage: UNK
     Route: 042
     Dates: start: 200908, end: 201005
  2. TROGARZO [Suspect]
     Active Substance: IBALIZUMAB-UIYK
     Dosage: UNK
     Route: 042
     Dates: start: 201602, end: 201607
  3. FOSTEMSAVIR [Concomitant]
     Active Substance: FOSTEMSAVIR
     Indication: Product used for unknown indication
  4. LAMIVUDINE [Concomitant]
     Active Substance: LAMIVUDINE
     Indication: Product used for unknown indication

REACTIONS (3)
  - Anal cancer recurrent [Unknown]
  - Drug resistance [Unknown]
  - Adverse event [Unknown]
